FAERS Safety Report 4311278-7 (Version None)
Quarter: 2004Q1

REPORT INFORMATION
  Report Type: 
  Country: None (occurrence: None)
  Receive Date: 20040304
  Receipt Date: 20031024
  Transmission Date: 20041129
  Serious: Yes (Other)
  Sender: FDA-Public Use
  Company Number: US-GLAXOSMITHKLINE-A0431603A

PATIENT
  Age: 44 Year
  Sex: Female

DRUGS (1)
  1. MEPRON [Suspect]
     Indication: ANTIBACTERIAL PROPHYLAXIS
     Dosage: 1500MG PER DAY
     Route: 048
     Dates: start: 20030121, end: 20030414

REACTIONS (3)
  - DERMATITIS [None]
  - HYPERKERATOSIS [None]
  - URTICARIA [None]
